FAERS Safety Report 8993458 (Version 3)
Quarter: 2013Q2

REPORT INFORMATION
  Report Type: Spontaneous
  Country: DE (occurrence: DE)
  Receive Date: 20130102
  Receipt Date: 20130404
  Transmission Date: 20140414
  Serious: Yes (Hospitalization, Other)
  Sender: FDA-Public Use
  Company Number: DE-JNJFOC-20130100432

PATIENT
  Age: 78 Year
  Sex: Female
  Weight: 50 kg

DRUGS (10)
  1. XARELTO [Suspect]
     Indication: PRODUCT USED FOR UNKNOWN INDICATION
     Route: 048
  2. PREDNISOLON [Concomitant]
     Route: 048
  3. SIMVAHEXAL [Concomitant]
     Route: 048
  4. PANTOZOL [Concomitant]
     Route: 048
  5. INSULIN HUMAN [Concomitant]
     Route: 058
  6. DELIX [Concomitant]
     Route: 065
  7. DIGIMERCK [Concomitant]
     Route: 065
  8. FOLIC ACID [Concomitant]
     Route: 065
  9. FURORESE [Concomitant]
     Route: 065
  10. JUTABIS [Concomitant]
     Route: 065

REACTIONS (6)
  - Bleeding varicose vein [Recovered/Resolved]
  - Shock haemorrhagic [Unknown]
  - Haematoma [Recovered/Resolved]
  - Coagulopathy [Recovered/Resolved]
  - Subcutaneous haematoma [Recovered/Resolved]
  - Drug intolerance [Unknown]
